FAERS Safety Report 8187427-X (Version None)
Quarter: 2012Q1

REPORT INFORMATION
  Report Type: 
  Country: None (occurrence: None)
  Receive Date: 20120302
  Receipt Date: 20120221
  Transmission Date: 20120608
  Serious: Yes (Hospitalization)
  Sender: FDA-Public Use
  Company Number: 2012SP009680

PATIENT
  Age: 71 Year
  Sex: Male
  Weight: 79 kg

DRUGS (11)
  1. ACYCLOVIR [Concomitant]
  2. ASPIRIN [Concomitant]
  3. VELCADE [Suspect]
     Indication: MULTIPLE MYELOMA
     Dosage: 1.8 MG;SC
     Route: 058
     Dates: start: 20110607, end: 20111121
  4. DEXAMETHASONE TAB [Suspect]
     Indication: MULTIPLE MYELOMA
     Dosage: 20 MG;PO
     Route: 048
     Dates: start: 20110607, end: 20111121
  5. CORSODYL [Concomitant]
  6. FLUTICASONE PROPIONATE/SALMETEROL [Concomitant]
  7. MICONAZOLE [Concomitant]
  8. NYSTATIN [Concomitant]
  9. OMEPRAZOLE [Concomitant]
  10. ONDANSETRON [Concomitant]
  11. DISOPYRAMIDE [Concomitant]

REACTIONS (4)
  - OFF LABEL USE [None]
  - PYREXIA [None]
  - MALAISE [None]
  - INFECTION [None]
